FAERS Safety Report 23458225 (Version 1)
Quarter: 2024Q1

REPORT INFORMATION
  Report Type: Spontaneous
  Country: US (occurrence: US)
  Receive Date: 20240130
  Receipt Date: 20240130
  Transmission Date: 20240409
  Serious: No
  Sender: FDA-Public Use
  Company Number: US-MYLANLABS-2024M1005604

PATIENT
  Sex: Female

DRUGS (1)
  1. TYRVAYA [Suspect]
     Active Substance: VARENICLINE TARTRATE
     Indication: Dry eye
     Dosage: UNK, BID
     Route: 045

REACTIONS (6)
  - Cough [Unknown]
  - Throat irritation [Unknown]
  - Sneezing [Unknown]
  - Ear disorder [Unknown]
  - Product delivery mechanism issue [Unknown]
  - Product quality issue [Unknown]
